FAERS Safety Report 5033624-1 (Version None)
Quarter: 2006Q2

REPORT INFORMATION
  Report Type: 
  Country: None (occurrence: None)
  Receive Date: 20060623
  Receipt Date: 20060306
  Transmission Date: 20061013
  Serious: Yes (Other)
  Sender: FDA-Public Use
  Company Number: PHEH2006US02908

PATIENT
  Age: 58 Year
  Sex: Male

DRUGS (8)
  1. STALEVO 100 [Suspect]
     Indication: PARKINSON'S DISEASE
     Dosage: 100 MG, QID
     Route: 048
     Dates: start: 20050501
  2. MIRAPEX ^PHARMACIA + UPJOHN^ [Concomitant]
  3. FLOMAX ^CSL^ [Concomitant]
  4. VESICARE [Concomitant]
  5. PROZAC [Concomitant]
  6. LISINOPRIL [Concomitant]
  7. VITAMINS NOS [Concomitant]
  8. OXYCODONE HCL [Concomitant]

REACTIONS (9)
  - BIOPSY BONE MARROW [None]
  - BLOOD PRODUCT TRANSFUSION [None]
  - DENTAL TREATMENT [None]
  - ENDODONTIC PROCEDURE [None]
  - HAEMOGLOBIN DECREASED [None]
  - KNEE ARTHROPLASTY [None]
  - PLATELET COUNT DECREASED [None]
  - TOOTH EXTRACTION [None]
  - WEIGHT FLUCTUATION [None]
